FAERS Safety Report 19968306 (Version 1)
Quarter: 2021Q4

REPORT INFORMATION
  Report Type: Spontaneous
  Country: IN (occurrence: IN)
  Receive Date: 20211019
  Receipt Date: 20211019
  Transmission Date: 20220304
  Serious: Yes (Other)
  Sender: FDA-Public Use
  Company Number: IN-LUPIN PHARMACEUTICALS INC.-2021-19607

PATIENT
  Age: 7 Year
  Sex: Female

DRUGS (5)
  1. METHYLPREDNISOLONE [Suspect]
     Active Substance: METHYLPREDNISOLONE
     Indication: Multisystem inflammatory syndrome in children
     Dosage: 30 MILLIGRAM/KILOGRAM, QD
     Route: 065
  2. DEXAMETHASONE [Suspect]
     Active Substance: DEXAMETHASONE
     Indication: Multisystem inflammatory syndrome in children
     Dosage: 0.15 MILLIGRAM/KILOGRAM, QID (6 HOURLY)
     Route: 042
  3. NOREPINEPHRINE [Concomitant]
     Active Substance: NOREPINEPHRINE
     Indication: Toxic shock syndrome
     Dosage: 1 MICROGRAM/KILOGRAM PER MINUTE
     Route: 065
  4. MEROPENEM [Concomitant]
     Active Substance: MEROPENEM
     Indication: Toxic shock syndrome
     Dosage: 60 MILLIGRAM/KILOGRAM, QD
     Route: 065
  5. VANCOMYCIN [Concomitant]
     Active Substance: VANCOMYCIN
     Indication: Toxic shock syndrome
     Dosage: 45 MILLIGRAM/KILOGRAM, QD
     Route: 065

REACTIONS (2)
  - Hypertension [Recovered/Resolved]
  - Off label use [Unknown]
